FAERS Safety Report 21843046 (Version 1)
Quarter: 2023Q1

REPORT INFORMATION
  Report Type: Spontaneous
  Country: US (occurrence: US)
  Receive Date: 20230110
  Receipt Date: 20230110
  Transmission Date: 20230417
  Serious: No
  Sender: FDA-Public Use
  Company Number: US-PERRIGO-22US007168

PATIENT
  Age: 85 Year
  Sex: Male
  Weight: 62.132 kg

DRUGS (1)
  1. PERMETHRIN [Suspect]
     Active Substance: PERMETHRIN
     Indication: Lice infestation
     Dosage: UNKNOWN, SINGLE
     Route: 061
     Dates: start: 20220514, end: 20220514

REACTIONS (1)
  - Product administered at inappropriate site [Recovered/Resolved]

NARRATIVE: CASE EVENT DATE: 20220514
